FAERS Safety Report 10735534 (Version 1)
Quarter: 2015Q1

REPORT INFORMATION
  Report Type: Spontaneous
  Country: US (occurrence: US)
  Receive Date: 20150126
  Receipt Date: 20150126
  Transmission Date: 20150721
  Serious: Yes (Death)
  Sender: FDA-Public Use
  Company Number: US-009507513-1501USA007696

PATIENT
  Age: 22 Year
  Sex: Male

DRUGS (8)
  1. QUININE [Suspect]
     Active Substance: QUININE
  2. OXYCODONE [Suspect]
     Active Substance: OXYCODONE
  3. CODEINE [Suspect]
     Active Substance: CODEINE
  4. ORGATRAX [Suspect]
     Active Substance: HYDROXYZINE HYDROCHLORIDE
  5. COCAINE [Suspect]
     Active Substance: COCAINE
  6. BUPROPION HYDROCHLORIDE. [Suspect]
     Active Substance: BUPROPION HYDROCHLORIDE
  7. TRAZODONE HYDROCHLORIDE. [Suspect]
     Active Substance: TRAZODONE HYDROCHLORIDE
  8. DIACETYLMORPHINE [Suspect]
     Active Substance: DIACETYLMORPHINE

REACTIONS (2)
  - Drug abuse [Fatal]
  - Toxicity to various agents [Fatal]
